FAERS Safety Report 12654696 (Version 1)
Quarter: 2016Q3

REPORT INFORMATION
  Report Type: Spontaneous
  Country: US (occurrence: None)
  Receive Date: 20160815
  Receipt Date: 20160815
  Transmission Date: 20161109
  Serious: No
  Sender: FDA-Public Use
  Company Number: None

PATIENT
  Age: 39 Year
  Sex: Male

DRUGS (5)
  1. RITUXAN [Concomitant]
     Active Substance: RITUXIMAB
  2. LIORESAL [Concomitant]
     Active Substance: BACLOFEN
  3. BOTOX [Concomitant]
     Active Substance: ONABOTULINUMTOXINA
  4. AMPYRA [Suspect]
     Active Substance: DALFAMPRIDINE
     Indication: MULTIPLE SCLEROSIS
     Route: 048
     Dates: start: 201007
  5. PROVIGIL [Concomitant]
     Active Substance: MODAFINIL

REACTIONS (1)
  - Laboratory test abnormal [None]

NARRATIVE: CASE EVENT DATE: 20160726
